FAERS Safety Report 24064271 (Version 1)
Quarter: 2024Q3

REPORT INFORMATION
  Report Type: Spontaneous
  Country: US (occurrence: US)
  Receive Date: 20240709
  Receipt Date: 20240709
  Transmission Date: 20241016
  Serious: No
  Sender: CIPLA
  Company Number: US-CIPLA LTD.-2023US03208

PATIENT

DRUGS (1)
  1. WARFARIN [Suspect]
     Active Substance: WARFARIN
     Indication: Heart valve replacement
     Dosage: 2 MILLIGRAM, QD
     Route: 048

REACTIONS (5)
  - Pustule [Not Recovered/Not Resolved]
  - Nodule [Not Recovered/Not Resolved]
  - Product complaint [Unknown]
  - Pruritus [Not Recovered/Not Resolved]
  - Rash [Not Recovered/Not Resolved]

NARRATIVE: CASE EVENT DATE: 20230604
